FAERS Safety Report 15634855 (Version 1)
Quarter: 2018Q4

REPORT INFORMATION
  Report Type: Spontaneous
  Country: US (occurrence: US)
  Receive Date: 20181119
  Receipt Date: 20181119
  Transmission Date: 20190205
  Serious: No
  Sender: FDA-Public Use
  Company Number: US-VIFOR (INTERNATIONAL) INC.-VIT-2018-10731

PATIENT
  Age: 60 Year
  Sex: Male
  Weight: 71.2 kg

DRUGS (1)
  1. MIRCERA [Suspect]
     Active Substance: METHOXY POLYETHYLENE GLYCOL-EPOETIN BETA
     Indication: PRODUCT USED FOR UNKNOWN INDICATION

REACTIONS (6)
  - Pruritus [Unknown]
  - Pulse abnormal [Unknown]
  - Anxiety [Unknown]
  - Urticaria [Unknown]
  - Heart rate increased [Unknown]
  - Flushing [Unknown]

NARRATIVE: CASE EVENT DATE: 20181016
